FAERS Safety Report 15791374 (Version 2)
Quarter: 2019Q1

REPORT INFORMATION
  Report Type: Spontaneous
  Country: BE (occurrence: BE)
  Receive Date: 20190104
  Receipt Date: 20190118
  Transmission Date: 20190417
  Serious: Yes (Other)
  Sender: FDA-Public Use
  Company Number: BE-GILEAD-2018-0337858

PATIENT
  Age: 35 Year
  Sex: Female
  Weight: 57.6 kg

DRUGS (5)
  1. STELARA [Concomitant]
     Active Substance: USTEKINUMAB
     Indication: CROHN^S DISEASE
     Dosage: UNK
     Dates: start: 20180214
  2. ZEFFIX [Concomitant]
     Active Substance: LAMIVUDINE
     Dosage: UNK
  3. PANTOMED                           /00178901/ [Concomitant]
     Active Substance: DEXPANTHENOL
     Indication: GASTROOESOPHAGEAL REFLUX DISEASE
     Dosage: 40 MG, UNK
     Dates: start: 20180110
  4. VEMLIDY [Suspect]
     Active Substance: TENOFOVIR ALAFENAMIDE FUMARATE
     Indication: CHRONIC HEPATITIS B
     Dosage: 25 MG, QD
     Route: 048
  5. OMNIBIONTA                         /01015101/ [Concomitant]
     Indication: PREGNANCY
     Dosage: UNK
     Dates: start: 20180316

REACTIONS (7)
  - Maternal exposure during pregnancy [Recovered/Resolved]
  - Diarrhoea [Unknown]
  - Crohn^s disease [Unknown]
  - Premature labour [Recovered/Resolved]
  - Hepatic enzyme increased [Unknown]
  - Placenta praevia [Recovered/Resolved]
  - Cervix cerclage procedure [Recovered/Resolved]

NARRATIVE: CASE EVENT DATE: 201802
